FAERS Safety Report 5304609-2 (Version None)
Quarter: 2007Q2

REPORT INFORMATION
  Report Type: 
  Country: None (occurrence: None)
  Receive Date: 20070423
  Receipt Date: 20070417
  Transmission Date: 20071010
  Serious: Yes (Death, Life-Threatening, Hospitalization)
  Sender: FDA-Public Use
  Company Number: JP-JPN-A200701380

PATIENT
  Age: 70 Year
  Sex: Female

DRUGS (8)
  1. VALTREX [Suspect]
     Indication: HERPES ZOSTER
     Dosage: 1000MG THREE TIMES PER DAY
     Route: 048
     Dates: start: 20070301, end: 20070325
  2. LOXONIN [Concomitant]
     Route: 065
  3. CYANOCOBALAMIN [Concomitant]
     Route: 065
  4. RYTHMODAN [Concomitant]
     Route: 048
  5. NIVADIL [Concomitant]
     Route: 048
  6. DIGOXIN [Concomitant]
     Indication: ARRHYTHMIA
     Route: 048
  7. ACYCLOVIR [Concomitant]
     Indication: HERPES ZOSTER
     Dosage: 750MG PER DAY
     Route: 042
     Dates: start: 20070325, end: 20070326
  8. VOLTAREN [Concomitant]
     Dosage: 25MG PER DAY
     Route: 054
     Dates: start: 20070325, end: 20070325

REACTIONS (11)
  - ARRHYTHMIA [None]
  - BLOOD CULTURE POSITIVE [None]
  - BRAIN DEATH [None]
  - DEPRESSED LEVEL OF CONSCIOUSNESS [None]
  - DISSEMINATED INTRAVASCULAR COAGULATION [None]
  - HAEMORRHAGIC INFARCTION [None]
  - LIVER DISORDER [None]
  - MYDRIASIS [None]
  - PNEUMOCOCCAL INFECTION [None]
  - RENAL FAILURE ACUTE [None]
  - SNORING [None]
